FAERS Safety Report 8154754-1 (Version None)
Quarter: 2012Q1

REPORT INFORMATION
  Report Type: 
  Country: None (occurrence: None)
  Receive Date: 20120221
  Receipt Date: 20120208
  Transmission Date: 20120608
  Serious: Yes (Other)
  Sender: FDA-Public Use
  Company Number: PHHY2011CA40287

PATIENT
  Sex: Male

DRUGS (1)
  1. SANDOSTATIN LAR [Suspect]
     Indication: GASTRINOMA
     Dosage: 20 MG, QMO
     Route: 030
     Dates: start: 20081222

REACTIONS (4)
  - DIARRHOEA [None]
  - ASTHENIA [None]
  - ABDOMINAL PAIN [None]
  - CONSTIPATION [None]
